FAERS Safety Report 8619389-2 (Version None)
Quarter: 2012Q3

REPORT INFORMATION
  Report Type: 
  Country: None (occurrence: None)
  Receive Date: 20120824
  Receipt Date: 20120814
  Transmission Date: 20120928
  Serious: Yes (Other)
  Sender: FDA-Public Use
  Company Number: MX-BRISTOL-MYERS SQUIBB COMPANY-16859712

PATIENT
  Age: 60 Year
  Sex: Female

DRUGS (2)
  1. GLYBURIDE AND METFORMIN HYDROCHLORIDE [Suspect]
     Indication: TYPE 2 DIABETES MELLITUS
     Dosage: 1 DOSAGE FORM : 1 TABLET (300 MG OF IRBESARTAN + 12.5 MG OF HYDROCHLOROTHIAZIDE)
     Route: 048
  2. IRBESARTAN AND HYDROCHLOROTHIAZIDE [Suspect]
     Indication: HYPERTENSION
     Dosage: 1DF:1 TAB 300MG/12.5MG
     Route: 048
     Dates: start: 20060101

REACTIONS (2)
  - LACERATION [None]
  - TYPE 2 DIABETES MELLITUS [None]
